FAERS Safety Report 14194423 (Version 1)
Quarter: 2017Q4

REPORT INFORMATION
  Report Type: Spontaneous
  Country: US (occurrence: US)
  Receive Date: 20171115
  Receipt Date: 20171115
  Transmission Date: 20180321
  Serious: Yes (Disabling)
  Sender: FDA-Public Use
  Company Number: None

PATIENT
  Age: 61 Year
  Sex: Male
  Weight: 144 kg

DRUGS (1)
  1. METFORMIN HCL 500 MG [Suspect]
     Active Substance: METFORMIN HYDROCHLORIDE
     Indication: BLOOD GLUCOSE INCREASED
     Dosage: ?          QUANTITY:60 TABLET(S);?
     Route: 048
     Dates: start: 20160627, end: 20171027

REACTIONS (5)
  - Dyspepsia [None]
  - Diarrhoea [None]
  - Serum ferritin increased [None]
  - Barrett^s oesophagus [None]
  - Liver disorder [None]

NARRATIVE: CASE EVENT DATE: 20160630
